FAERS Safety Report 24360995 (Version 8)
Quarter: 2025Q1

REPORT INFORMATION
  Report Type: Report from Study
  Country: CA (occurrence: CA)
  Receive Date: 20240925
  Receipt Date: 20250121
  Transmission Date: 20250409
  Serious: Yes (Hospitalization)
  Sender: BAUSCH AND LOMB
  Company Number: CA-BAUSCH-BL-2024-014296

PATIENT
  Age: 61 Year
  Sex: Female

DRUGS (4)
  1. SILIQ [Suspect]
     Active Substance: BRODALUMAB
     Indication: Psoriasis
     Dosage: 210 MG / 1.5 ML, 1 INJECTION Q1 WEEK X 2 WEEKS THEN OFF X 2 WEEKS
     Route: 058
     Dates: start: 20240731, end: 202408
  2. SILIQ [Suspect]
     Active Substance: BRODALUMAB
     Dosage: 210 MG / 1.5 ML, Q2 WEEKS
     Route: 058
     Dates: start: 202408, end: 202412
  3. SILIQ [Suspect]
     Active Substance: BRODALUMAB
     Dosage: 210 MG / 1.5 ML, WEEKLY (OFF-LABEL)
     Route: 058
     Dates: start: 202412
  4. VANCOMYCIN [Suspect]
     Active Substance: VANCOMYCIN
     Indication: Product used for unknown indication
     Route: 065
     Dates: end: 202409

REACTIONS (5)
  - Psoriatic arthropathy [Not Recovered/Not Resolved]
  - Psoriasis [Recovering/Resolving]
  - Rash [Unknown]
  - Drug titration error [Unknown]
  - Off label use [Unknown]

NARRATIVE: CASE EVENT DATE: 20240101
